FAERS Safety Report 6018660-0 (Version None)
Quarter: 2008Q4

REPORT INFORMATION
  Report Type: 
  Country: None (occurrence: None)
  Receive Date: 20081223
  Receipt Date: 20081215
  Transmission Date: 20090506
  Serious: Yes (Death)
  Sender: FDA-Public Use
  Company Number: US-PFIZER INC-2008155840

PATIENT

DRUGS (5)
  1. GLIBENCLAMIDE [Suspect]
  2. METFORMIN HCL [Suspect]
  3. SERTRALINE HCL [Suspect]
  4. TRAMADOL HCL [Suspect]
  5. L-DOPA [Suspect]

REACTIONS (1)
  - COMPLETED SUICIDE [None]
